FAERS Safety Report 13631439 (Version 1)
Quarter: 2017Q2

REPORT INFORMATION
  Report Type: Spontaneous
  Country: US (occurrence: US)
  Receive Date: 20170608
  Receipt Date: 20170608
  Transmission Date: 20170830
  Serious: Yes (Other)
  Sender: FDA-Public Use
  Company Number: US-SA-2017SA099542

PATIENT
  Age: 57 Year
  Sex: Female

DRUGS (9)
  1. TAXOTERE [Suspect]
     Active Substance: DOCETAXEL
     Indication: BREAST CANCER
     Route: 042
  2. TRAMADOL. [Concomitant]
     Active Substance: TRAMADOL
     Indication: PAIN
     Route: 065
  3. ZOFRAN [Concomitant]
     Active Substance: ONDANSETRON HYDROCHLORIDE
     Dosage: EVERY 6 HOUR AS NEEDED
     Route: 065
  4. HMG COA REDUCTASE INHIBITORS [Concomitant]
     Active Substance: UNSPECIFIED INGREDIENT
     Route: 065
  5. LORTAB [Concomitant]
     Active Substance: ACETAMINOPHEN\HYDROCODONE BITARTRATE
     Dosage: FREQUENCY:- Q 4 HOUR PRN
     Route: 065
  6. HYDROCHLOROTHIAZIDE. [Concomitant]
     Active Substance: HYDROCHLOROTHIAZIDE
     Route: 065
  7. COUMADIN [Concomitant]
     Active Substance: WARFARIN SODIUM
     Route: 065
  8. DECADRON [Concomitant]
     Active Substance: DEXAMETHASONE
     Dosage: EVERY MORNING
     Route: 065
  9. XANAX [Concomitant]
     Active Substance: ALPRAZOLAM
     Route: 065

REACTIONS (6)
  - Nausea [Unknown]
  - Diarrhoea [Unknown]
  - Gastroenteritis [Unknown]
  - Vomiting [Unknown]
  - Abdominal pain [Unknown]
  - Injury [Unknown]
